FAERS Safety Report 8448044-7 (Version None)
Quarter: 2012Q2

REPORT INFORMATION
  Report Type: 
  Country: None (occurrence: None)
  Receive Date: 20120619
  Receipt Date: 20120611
  Transmission Date: 20120825
  Serious: Yes (Hospitalization)
  Sender: FDA-Public Use
  Company Number: FR-BAYER-2012-058316

PATIENT
  Age: 69 Year
  Sex: Female

DRUGS (4)
  1. OLMESARTAN MEDOXOMIL [Concomitant]
  2. CIPROFLOXACIN HYDROCHLORIDE [Suspect]
     Indication: PYELONEPHRITIS ACUTE
     Dosage: UNK
     Route: 048
     Dates: start: 20110305, end: 20110308
  3. VITAMIN B-12 [Concomitant]
  4. ROCEPHIN [Concomitant]

REACTIONS (5)
  - RESPIRATORY DISTRESS [None]
  - LUNG DISORDER [None]
  - EPIDERMAL NECROSIS [None]
  - RASH MORBILLIFORM [None]
  - PYREXIA [None]
